FAERS Safety Report 5011023-6 (Version None)
Quarter: 2006Q2

REPORT INFORMATION
  Report Type: 
  Country: None (occurrence: None)
  Receive Date: 20060523
  Receipt Date: 20060512
  Transmission Date: 20061013
  Serious: Yes (Other)
  Sender: FDA-Public Use
  Company Number: 2006-00339

PATIENT
  Age: 59 Year
  Sex: Female
  Weight: 82 kg

DRUGS (7)
  1. VELCADE [Suspect]
     Indication: MULTIPLE MYELOMA
     Dosage: 2.40 MG, INTRAVENOUS
     Route: 042
     Dates: start: 20051206
  2. DEXAMETHASONE TAB [Concomitant]
  3. CLOMIPRAMINE HCL [Concomitant]
  4. SIMVASTATIN [Concomitant]
  5. DOCUSATE (DOCUSATE) [Concomitant]
  6. SENNA (SENNA) [Concomitant]
  7. PREMIQUE (MEDROXYPROGESTERONE ACETATE, ESTROGENS CONJUGATED) [Concomitant]

REACTIONS (4)
  - ANGIONEUROTIC OEDEMA [None]
  - PERIORBITAL OEDEMA [None]
  - THERAPY NON-RESPONDER [None]
  - URTICARIA [None]
